FAERS Safety Report 17423441 (Version 1)
Quarter: 2020Q1

REPORT INFORMATION
  Report Type: Spontaneous
  Country: US (occurrence: US)
  Receive Date: 20200131
  Receipt Date: 20200131
  Transmission Date: 20200409
  Serious: No
  Sender: FDA-Public Use
  Company Number: None

PATIENT
  Age: 43 Year
  Sex: Female

DRUGS (1)
  1. AUBAGIO [Suspect]
     Active Substance: TERIFLUNOMIDE
     Route: 048
     Dates: start: 201902

REACTIONS (5)
  - Pneumonia [None]
  - Insurance issue [None]
  - Headache [None]
  - Therapy cessation [None]
  - Bronchitis [None]

NARRATIVE: CASE EVENT DATE: 20200131
